FAERS Safety Report 7057808-6 (Version None)
Quarter: 2010Q4

REPORT INFORMATION
  Report Type: 
  Country: None (occurrence: None)
  Receive Date: 20101021
  Receipt Date: 20101021
  Transmission Date: 20110411
  Serious: Yes (Other)
  Sender: FDA-Public Use
  Company Number: None

PATIENT
  Sex: Female

DRUGS (2)
  1. GABAPENTIN [Suspect]
     Dosage: 800MG 1TID PO
     Route: 048
     Dates: start: 20101002, end: 20101020
  2. GABAPENTIN [Suspect]
     Dosage: 600MG 1QID PO
     Route: 048
     Dates: start: 20101005, end: 20101020

REACTIONS (3)
  - DRUG DEPENDENCE [None]
  - TIC [None]
  - TREMOR [None]
